FAERS Safety Report 5141925-1 (Version None)
Quarter: 2006Q4

REPORT INFORMATION
  Report Type: 
  Country: None (occurrence: None)
  Receive Date: 20061102
  Receipt Date: 20040205
  Transmission Date: 20070319
  Serious: Yes (Death, Hospitalization)
  Sender: FDA-Public Use
  Company Number: PHFR2004GB00923

PATIENT
  Age: 28 Year
  Sex: Male

DRUGS (5)
  1. HALOPERIDOL [Concomitant]
     Route: 065
  2. METFORMIN HCL [Concomitant]
     Dosage: 1500 MG/DAY
     Route: 048
  3. GLICLAZIDE [Concomitant]
     Dosage: 320 MG/DAY
     Route: 048
  4. SALBUTAMOL INHALANT ^RATIOPHARM^ [Concomitant]
  5. CLOZARIL [Suspect]
     Indication: SCHIZOPHRENIA
     Dosage: 225MG/DAY
     Route: 048
     Dates: start: 20001127, end: 20040125

REACTIONS (13)
  - AORTIC ARTERIOSCLEROSIS [None]
  - CARDIAC FAILURE [None]
  - CARDIOMEGALY [None]
  - CIRCULATORY COLLAPSE [None]
  - CONGESTIVE CARDIOMYOPATHY [None]
  - CORONARY ARTERY DISEASE [None]
  - DILATATION VENTRICULAR [None]
  - EJECTION FRACTION DECREASED [None]
  - EXERCISE TOLERANCE DECREASED [None]
  - PALLOR [None]
  - PERICARDIAL EFFUSION [None]
  - PULMONARY CONGESTION [None]
  - PULMONARY OEDEMA [None]
